FAERS Safety Report 23705671 (Version 1)
Quarter: 2024Q2

REPORT INFORMATION
  Report Type: Spontaneous
  Country: US (occurrence: US)
  Receive Date: 20240404
  Receipt Date: 20240404
  Transmission Date: 20240716
  Serious: Yes (Hospitalization)
  Sender: FDA-Public Use
  Company Number: US-TEVA-VS-3166345

PATIENT
  Sex: Male

DRUGS (1)
  1. WARFARIN SODIUM [Suspect]
     Active Substance: WARFARIN SODIUM
     Indication: Product used for unknown indication
     Dosage: 1MG OF 100 COUNT BOTTLE
     Route: 065

REACTIONS (6)
  - Loss of consciousness [Unknown]
  - Drug ineffective [Unknown]
  - Haemorrhage [Unknown]
  - Complication associated with device [Unknown]
  - Haemoglobin decreased [Unknown]
  - International normalised ratio abnormal [Unknown]
